FAERS Safety Report 6058442-7 (Version None)
Quarter: 2009Q1

REPORT INFORMATION
  Report Type: 
  Country: None (occurrence: None)
  Receive Date: 20090130
  Receipt Date: 20090121
  Transmission Date: 20090719
  Serious: Yes (Hospitalization)
  Sender: FDA-Public Use
  Company Number: JP-NOVOPROD-255952

PATIENT
  Sex: Male
  Weight: 14.8 kg

DRUGS (4)
  1. NORDITROPIN [Suspect]
     Indication: SMALL FOR DATES BABY
     Dosage: UNK, UNK
     Route: 058
     Dates: start: 20050929, end: 20060104
  2. NORDITROPIN [Suspect]
     Route: 058
     Dates: start: 20060105, end: 20060329
  3. NORDITROPIN [Suspect]
     Route: 058
     Dates: start: 20060330, end: 20060628
  4. NORDITROPIN [Suspect]
     Route: 058
     Dates: start: 20060629, end: 20060823

REACTIONS (1)
  - IGA NEPHROPATHY [None]
